FAERS Safety Report 11780686 (Version 2)
Quarter: 2016Q1

REPORT INFORMATION
  Report Type: Spontaneous
  Country: DE (occurrence: DE)
  Receive Date: 20151126
  Receipt Date: 20160215
  Transmission Date: 20160525
  Serious: Yes (Hospitalization, Other)
  Sender: FDA-Public Use
  Company Number: DE-ROCHE-1667203

PATIENT
  Sex: Male

DRUGS (15)
  1. VINCRISTINE [Suspect]
     Active Substance: VINCRISTINE
     Indication: B-CELL LYMPHOMA
     Dosage: LAST DOSE PRIOR TO SAE WAS ON 21/OCT/2015
     Route: 042
     Dates: start: 20150908
  2. SULFAMETHOXAZOLE/TRIMETHOPRIM [Concomitant]
     Active Substance: SULFAMETHOXAZOLE\TRIMETHOPRIM
  3. DOXORUBICIN [Suspect]
     Active Substance: DOXORUBICIN
     Indication: B-CELL LYMPHOMA
     Dosage: LAST DOSE PRIOR TO SAE WAS ON 21/OCT/2015
     Route: 042
     Dates: start: 20150908
  4. PREDNISOLONE. [Suspect]
     Active Substance: PREDNISOLONE
     Indication: B-CELL LYMPHOMA
     Dosage: LAST DOSE PRIOR TO SAE WAS GIVEN ON 21/OCT/2015.
     Route: 048
     Dates: start: 20150908
  5. PANTOPRAZOLE SODIUM. [Concomitant]
     Active Substance: PANTOPRAZOLE SODIUM
  6. RITUXIMAB [Suspect]
     Active Substance: RITUXIMAB
     Indication: B-CELL LYMPHOMA
     Dosage: LAST DOSE PRIOR TO SAE WAS ON 20/OCT/2015. MOST RECENT CYCLE WAS CYCLE NUMBER 4.
     Route: 042
     Dates: start: 20150828
  7. ENALAPRIL MALEATE. [Concomitant]
     Active Substance: ENALAPRIL MALEATE
  8. NEULASTA [Suspect]
     Active Substance: PEGFILGRASTIM
     Indication: B-CELL LYMPHOMA
     Route: 058
     Dates: start: 20150911
  9. CYCLOPHOSPHAMIDE. [Suspect]
     Active Substance: CYCLOPHOSPHAMIDE
     Indication: B-CELL LYMPHOMA
     Dosage: LAST DOSE PRIOR TO SAE WAS ON 21/OCT/2015
     Route: 042
     Dates: start: 20150908
  10. METHOTREXATE DISODIUM [Suspect]
     Active Substance: METHOTREXATE SODIUM
     Indication: B-CELL LYMPHOMA
     Route: 042
     Dates: start: 20150829
  11. HYDROCHLOROTHIAZIDE. [Concomitant]
     Active Substance: HYDROCHLOROTHIAZIDE
  12. COLECALCIFEROL [Concomitant]
     Active Substance: CHOLECALCIFEROL
  13. AMLODIPINE [Concomitant]
     Active Substance: AMLODIPINE BESYLATE
  14. ALLOPURINOL. [Concomitant]
     Active Substance: ALLOPURINOL
  15. ACICLOVIR [Concomitant]
     Active Substance: ACYCLOVIR

REACTIONS (2)
  - Pulmonary embolism [Unknown]
  - Diarrhoea [Unknown]

NARRATIVE: CASE EVENT DATE: 20151104
